FAERS Safety Report 7578091-9 (Version None)
Quarter: 2011Q2

REPORT INFORMATION
  Report Type: 
  Country: None (occurrence: None)
  Receive Date: 20110621
  Receipt Date: 20110614
  Transmission Date: 20111010
  Serious: Yes (Hospitalization, Other)
  Sender: FDA-Public Use
  Company Number: GER/UKI/11/0018720

PATIENT
  Age: 61 Year
  Sex: Male

DRUGS (4)
  1. SIMVASTATIN [Concomitant]
  2. CLOPIDOGREL [Suspect]
     Indication: TRANSIENT ISCHAEMIC ATTACK
  3. OMEPRAZOLE [Concomitant]
  4. PENICILLIN V [Concomitant]

REACTIONS (6)
  - HEPATITIS E [None]
  - HEART RATE INCREASED [None]
  - LIVER DISORDER [None]
  - LIVEDO RETICULARIS [None]
  - MONOCYTOSIS [None]
  - DRY SKIN [None]
